FAERS Safety Report 5065103-X (Version None)
Quarter: 2006Q3

REPORT INFORMATION
  Report Type: 
  Country: None (occurrence: None)
  Receive Date: 20060727
  Receipt Date: 20060727
  Transmission Date: 20061208
  Serious: Yes (Hospitalization)
  Sender: FDA-Public Use
  Company Number: None

PATIENT
  Sex: Male
  Weight: 59 kg

DRUGS (1)
  1. REGLAN [Suspect]
     Indication: GASTROENTERITIS VIRAL
     Dosage: PO DOSE UNKNOWN
     Route: 048
     Dates: start: 20060302, end: 20060303

REACTIONS (6)
  - DYSPHAGIA [None]
  - DYSPNOEA [None]
  - PHARYNGEAL OEDEMA [None]
  - SPEECH DISORDER [None]
  - SWELLING FACE [None]
  - SWOLLEN TONGUE [None]
